FAERS Safety Report 8121617-7 (Version None)
Quarter: 2012Q1

REPORT INFORMATION
  Report Type: 
  Country: None (occurrence: None)
  Receive Date: 20120208
  Receipt Date: 20120125
  Transmission Date: 20120608
  Serious: Yes (Life-Threatening)
  Sender: FDA-Public Use
  Company Number: SK-UCBSA-045274

PATIENT
  Age: 74 Year
  Sex: Female
  Weight: 82 kg

DRUGS (34)
  1. CARBIDOPA AND LEVODOPA [Concomitant]
     Dates: start: 20101003, end: 20110120
  2. INFUSIO GLUCOSI [Concomitant]
     Indication: METABOLIC DISORDER
     Dosage: SOLUTION
     Dates: start: 20111016, end: 20111001
  3. NEUPRO [Suspect]
     Route: 062
     Dates: start: 20110208, end: 20110214
  4. POTASSIUM CHLORIDE [Suspect]
     Indication: METABOLIC DISORDER
  5. SIMVOR [Concomitant]
     Indication: HYPERCHOLESTEROLAEMIA
     Dates: end: 20111001
  6. LYRICA [Concomitant]
     Indication: NEURALGIA
     Dates: start: 20100923
  7. CIPROFLOXACIN [Concomitant]
     Dosage: SOLUTION
     Dates: start: 20111016, end: 20111001
  8. HUMULIN R [Concomitant]
     Indication: METABOLIC DISORDER
     Dosage: AMPOULES
     Dates: start: 20111001, end: 20111001
  9. ENOXAPARIN SODIUM [Concomitant]
     Indication: THROMBOSIS PROPHYLAXIS
     Dosage: AMPOULES
     Dates: start: 20111016, end: 20111001
  10. INFUSIO NATRIL CHLORATI ISOTONICA [Concomitant]
     Indication: METABOLIC DISORDER
     Dosage: SOLUTION
     Dates: start: 20111016, end: 20111001
  11. OMEPRAZOLE [Concomitant]
     Indication: PROPHYLAXIS
  12. NOOTROPIL [Concomitant]
     Indication: COGNITIVE DISORDER
  13. ALLOPURINOL [Concomitant]
     Indication: HYPERURICAEMIA
  14. ALPHA D3 [Concomitant]
     Indication: OSTEOPOROSIS PROPHYLAXIS
     Dates: start: 20110120
  15. CARBIDOPA AND LEVODOPA [Concomitant]
     Dates: start: 20100930, end: 20101002
  16. NEUPRO [Suspect]
     Indication: PARKINSON'S DISEASE
     Route: 062
     Dates: start: 20110223, end: 20111108
  17. NEUPRO [Suspect]
     Route: 062
     Dates: start: 20110215, end: 20110222
  18. NEBIVOLOL HCL [Concomitant]
     Indication: HYPERTENSION
  19. CALCIUM RESONIUM [Concomitant]
     Indication: METABOLIC DISORDER
     Dates: start: 20111016, end: 20111001
  20. NEUPRO [Suspect]
     Route: 062
     Dates: start: 20110201, end: 20110207
  21. ANOPYRIN [Concomitant]
     Indication: THROMBOSIS PROPHYLAXIS
  22. BISOPROLOL FUMARATE [Concomitant]
     Indication: MYOCARDIAL ISCHAEMIA
  23. CARBIDOPA AND LEVODOPA [Concomitant]
     Dates: start: 20100923, end: 20100926
  24. FUROSEMIDE [Concomitant]
     Indication: CHRONIC ALLOGRAFT NEPHROPATHY
  25. COSTI [Concomitant]
     Indication: PROPHYLAXIS
     Dates: start: 20100921
  26. RAMIPRIL [Concomitant]
     Indication: HYPERTENSION
  27. VINPOCETIN COVEX [Concomitant]
     Indication: ENCEPHALOPATHY
     Dates: start: 20100823, end: 20110920
  28. CARBIDOPA AND LEVODOPA [Concomitant]
     Indication: PARKINSON'S DISEASE
     Dates: start: 20110121
  29. AMOXICILLIN AND CLAVULANATE POTASSIUM [Concomitant]
     Indication: UPPER RESPIRATORY TRACT INFECTION
     Dates: start: 20111010, end: 20111016
  30. AMICLOTON [Concomitant]
     Indication: HYPERTENSION
     Dates: end: 20111016
  31. CAVINTON FORTE [Concomitant]
     Indication: ENCEPHALOPATHY
     Dates: start: 20110921, end: 20111108
  32. CAVINTON FORTE [Concomitant]
     Dates: start: 20111109
  33. CARBIDOPA AND LEVODOPA [Concomitant]
     Dates: start: 20100927, end: 20100929
  34. CIPROFLOXACIN [Concomitant]
     Indication: UPPER RESPIRATORY TRACT INFECTION
     Dates: start: 20111001, end: 20111001

REACTIONS (1)
  - RENAL FAILURE ACUTE [None]
